FAERS Safety Report 15842238 (Version 2)
Quarter: 2019Q2

REPORT INFORMATION
  Report Type: Spontaneous
  Country: US (occurrence: US)
  Receive Date: 20190118
  Receipt Date: 20190405
  Transmission Date: 20190711
  Serious: No
  Sender: FDA-Public Use
  Company Number: US-JNJFOC-20190103179

PATIENT
  Age: 71 Year
  Sex: Male
  Weight: 92.08 kg

DRUGS (1)
  1. TREMFYA [Suspect]
     Active Substance: GUSELKUMAB
     Indication: PRODUCT USED FOR UNKNOWN INDICATION
     Route: 058
     Dates: start: 20180214

REACTIONS (2)
  - Actinic cheilitis [Recovering/Resolving]
  - Lip dry [Unknown]

NARRATIVE: CASE EVENT DATE: 20181127
